FAERS Safety Report 17473190 (Version 1)
Quarter: 2020Q1

REPORT INFORMATION
  Report Type: Spontaneous
  Country: US (occurrence: US)
  Receive Date: 20200218
  Receipt Date: 20200218
  Transmission Date: 20200409
  Serious: Yes (Other)
  Sender: FDA-Public Use
  Company Number: None

PATIENT
  Age: 65 Year
  Sex: Female
  Weight: 82.56 kg

DRUGS (10)
  1. MULTI VITAMINS [Concomitant]
     Active Substance: VITAMINS
  2. MAGNESUEM [Concomitant]
  3. NORVASC [Concomitant]
     Active Substance: AMLODIPINE BESYLATE
  4. CALCIUM [Concomitant]
     Active Substance: CALCIUM
  5. LOTEMAX [Suspect]
     Active Substance: LOTEPREDNOL ETABONATE
  6. ASPIRIN. [Concomitant]
     Active Substance: ASPIRIN
  7. SUPER B COMPLEX [Concomitant]
     Active Substance: CYANOCOBALAMIN\DEXPANTHENOL\NIACINAMIDE\PYRIDOXINE HYDROCHLORIDE\RIBOFLAVIN 5^-PHOSPHATE SODIUM\THIAMINE HYDROCHLORIDE\VITAMIN B COMPLEX
  8. BESIVANCE [Suspect]
     Active Substance: BESIFLOXACIN
  9. FISH OIL [Concomitant]
     Active Substance: FISH OIL
  10. PROLENSA [Suspect]
     Active Substance: BROMFENAC SODIUM
     Indication: CATARACT OPERATION
     Dosage: ?          QUANTITY:1 GTT DROP(S);OTHER FREQUENCY:2-3 TIMES PER DAY;?
     Route: 047
     Dates: start: 20191110, end: 20191220

REACTIONS (2)
  - Rash [None]
  - Alopecia [None]

NARRATIVE: CASE EVENT DATE: 20191201
